FAERS Safety Report 9668574 (Version 4)
Quarter: 2015Q4

REPORT INFORMATION
  Report Type: Report from Study
  Country: US (occurrence: US)
  Receive Date: 20131105
  Receipt Date: 20151027
  Transmission Date: 20160305
  Serious: Yes (Other)
  Sender: FDA-Public Use
  Company Number: US-ROCHE-1293529

PATIENT
  Sex: Female

DRUGS (9)
  1. SYSTANE (HYPROMELLOSE 2910 (4000 MPA.S)) [Concomitant]
     Active Substance: HYPROMELLOSE 2910 (4000 MPA.S)
     Dosage: AS NEEDED, IN BOTH EYE OU
     Route: 065
     Dates: start: 20131022
  2. LIDOCAINE. [Concomitant]
     Active Substance: LIDOCAINE
     Indication: PREMEDICATION
     Route: 065
     Dates: start: 20131022
  3. LUCENTIS [Suspect]
     Active Substance: RANIBIZUMAB
     Indication: AGE-RELATED MACULAR DEGENERATION
     Route: 065
     Dates: start: 20120601
  4. TETRACAINE. [Concomitant]
     Active Substance: TETRACAINE
     Indication: PREMEDICATION
     Route: 065
     Dates: start: 20131022
  5. LUCENTIS [Suspect]
     Active Substance: RANIBIZUMAB
     Indication: RETINAL NEOVASCULARISATION
     Route: 050
     Dates: start: 20131022, end: 20131022
  6. LUCENTIS [Suspect]
     Active Substance: RANIBIZUMAB
     Route: 050
     Dates: start: 2009
  7. AVASTIN [Suspect]
     Active Substance: BEVACIZUMAB
     Indication: PRODUCT USED FOR UNKNOWN INDICATION
     Route: 065
  8. BESIVANCE [Concomitant]
     Active Substance: BESIFLOXACIN
     Dosage: DOSE:TID
     Route: 065
  9. LUCENTIS [Suspect]
     Active Substance: RANIBIZUMAB
     Indication: NEOVASCULAR AGE-RELATED MACULAR DEGENERATION
     Dosage: LEFT EYE
     Route: 050

REACTIONS (9)
  - Ophthalmological examination abnormal [Unknown]
  - Retinal haemorrhage [Unknown]
  - Visual impairment [Unknown]
  - Detachment of retinal pigment epithelium [Unknown]
  - Drug hypersensitivity [Unknown]
  - Visual acuity reduced [Unknown]
  - Glare [Unknown]
  - Vitreous detachment [Unknown]
  - Dry age-related macular degeneration [Unknown]
